FAERS Safety Report 8992685 (Version 1)
Quarter: 2013Q1

REPORT INFORMATION
  Report Type: Report from Study
  Country: IT (occurrence: IT)
  Receive Date: 20130101
  Receipt Date: 20130101
  Transmission Date: 20140127
  Serious: Yes (Hospitalization, Other)
  Sender: FDA-Public Use
  Company Number: IT-ROCHE-1175773

PATIENT
  Age: 58 Year
  Sex: Male
  Weight: 92 kg

DRUGS (7)
  1. VEMURAFENIB [Suspect]
     Indication: MALIGNANT MELANOMA
     Dosage: ROUTE: BY MOUTH
     Route: 048
     Dates: start: 20121108, end: 20121221
  2. CLOPIDOGREL [Concomitant]
     Dosage: 1C
     Route: 065
  3. BISOPROLOL [Concomitant]
     Route: 065
  4. ENAPREN [Concomitant]
     Route: 065
  5. ATORVASTATIN [Concomitant]
     Route: 065
  6. FUROSEMIDE [Concomitant]
     Route: 048
  7. ISOSORBIDE DINITRATE [Concomitant]
     Indication: CHEST PAIN

REACTIONS (1)
  - Acute myocardial infarction [Recovered/Resolved]
